FAERS Safety Report 24549930 (Version 1)
Quarter: 2024Q4

REPORT INFORMATION
  Report Type: Spontaneous
  Country: US (occurrence: US)
  Receive Date: 20241025
  Receipt Date: 20241025
  Transmission Date: 20250115
  Serious: Yes (Other)
  Sender: JOHNSON AND JOHNSON
  Company Number: US-JNJFOC-20241063068

PATIENT
  Sex: Female

DRUGS (2)
  1. STELARA [Suspect]
     Active Substance: USTEKINUMAB
     Indication: Product used for unknown indication
     Route: 058
  2. HUMIRA [Suspect]
     Active Substance: ADALIMUMAB
     Indication: Product used for unknown indication
     Dosage: SINGLE DOSE PEN.
     Route: 058
     Dates: start: 20120101

REACTIONS (4)
  - Cardiac failure congestive [Unknown]
  - COVID-19 [Unknown]
  - Psoriasis [Unknown]
  - Abdominal pain upper [Unknown]
